FAERS Safety Report 7472893-5 (Version None)
Quarter: 2011Q2

REPORT INFORMATION
  Report Type: 
  Country: None (occurrence: None)
  Receive Date: 20110503
  Receipt Date: 20110422
  Transmission Date: 20111010
  Serious: Yes (Death)
  Sender: FDA-Public Use
  Company Number: 201110479

PATIENT
  Sex: Male

DRUGS (3)
  1. BUPIVACAINE HCL [Concomitant]
  2. MORPHINE [Concomitant]
  3. LIORESAL [Suspect]
     Indication: MUSCLE SPASTICITY
     Dosage: MCG, DAILY, INTRATHECAL
     Route: 037

REACTIONS (2)
  - CONDITION AGGRAVATED [None]
  - PRE-EXISTING DISEASE [None]
